FAERS Safety Report 20724022 (Version 7)
Quarter: 2022Q2

REPORT INFORMATION
  Report Type: Report from Study
  Country: EC (occurrence: EC)
  Receive Date: 20220419
  Receipt Date: 20220526
  Transmission Date: 20220720
  Serious: Yes (Other)
  Sender: FDA-Public Use
  Company Number: EC-JNJFOC-20220407350

PATIENT
  Age: 61 Year
  Sex: Male
  Weight: 136 kg

DRUGS (11)
  1. ESKETAMINE [Suspect]
     Active Substance: ESKETAMINE
     Indication: Depression
     Dosage: INDUCTION PHASE (WEEK 1 TO 4): 2 TIMES PER WEEK
     Dates: start: 20220331
  2. ESKETAMINE [Suspect]
     Active Substance: ESKETAMINE
     Dates: start: 20220401
  3. ESKETAMINE [Suspect]
     Active Substance: ESKETAMINE
     Dates: start: 20220407
  4. ESKETAMINE [Suspect]
     Active Substance: ESKETAMINE
     Dates: start: 20220408
  5. ESKETAMINE [Suspect]
     Active Substance: ESKETAMINE
     Dates: start: 20220414
  6. ESKETAMINE [Suspect]
     Active Substance: ESKETAMINE
     Dosage: WEEK:4, DAY-1
     Dates: start: 20220421
  7. ESKETAMINE [Suspect]
     Active Substance: ESKETAMINE
     Dosage: WEEK:4, DAY-2
     Dates: start: 20220422
  8. ESKETAMINE [Suspect]
     Active Substance: ESKETAMINE
     Dosage: WEEK:5, DAY-1?ON 28-APR-2022, PATIENT STARTED THE PHASE 2 OF THE TREATMENT,1 TIME PER WEEK
     Dates: start: 20220428
  9. ESKETAMINE [Suspect]
     Active Substance: ESKETAMINE
     Dosage: WEEK:6,
     Dates: start: 20220505
  10. ESKETAMINE [Suspect]
     Active Substance: ESKETAMINE
     Dosage: WEEK:7
     Dates: start: 20220512
  11. ESKETAMINE [Suspect]
     Active Substance: ESKETAMINE
     Dosage: WEEK:7
     Dates: start: 20220519

REACTIONS (13)
  - Blood pressure increased [Unknown]
  - Lacrimation increased [Unknown]
  - Back pain [Unknown]
  - Gait disturbance [Unknown]
  - Anxiety [Unknown]
  - Somnolence [Unknown]
  - Dissociation [Unknown]
  - Diplopia [Unknown]
  - Fatigue [Unknown]
  - Dysgeusia [Unknown]
  - Vomiting [Unknown]
  - Vertigo [Unknown]
  - Depressed mood [Unknown]

NARRATIVE: CASE EVENT DATE: 20220331
